FAERS Safety Report 19798611 (Version 1)
Quarter: 2021Q3

REPORT INFORMATION
  Report Type: Spontaneous
  Country: CH (occurrence: CH)
  Receive Date: 20210906
  Receipt Date: 20210906
  Transmission Date: 20211014
  Serious: Yes (Life-Threatening, Hospitalization, Other)
  Sender: FDA-Public Use
  Company Number: CH-MALLINCKRODT PHARMACEUTICALS-T202103871

PATIENT
  Age: 79 Year
  Sex: Male

DRUGS (13)
  1. EZETROL [Concomitant]
     Active Substance: EZETIMIBE
     Indication: PRODUCT USED FOR UNKNOWN INDICATION
     Dosage: UNK
     Route: 065
  2. OFIRMEV [Suspect]
     Active Substance: ACETAMINOPHEN
     Dosage: 500 MILLIGRAM, QID
     Route: 065
  3. SORTIS [Concomitant]
     Active Substance: ATORVASTATIN
     Indication: PRODUCT USED FOR UNKNOWN INDICATION
     Dosage: UNK
     Route: 065
  4. NOVALGIN (METAMIZOLE SODIUM) [Suspect]
     Active Substance: METAMIZOLE SODIUM
     Indication: PRODUCT USED FOR UNKNOWN INDICATION
     Dosage: 1 GRAM, NUMBER OF UNITS IN THE INTERVAL (DAY) : 2
     Route: 041
     Dates: start: 20210731, end: 20210731
  5. APALUTAMIDE [Suspect]
     Active Substance: APALUTAMIDE
     Indication: PRODUCT USED FOR UNKNOWN INDICATION
     Dosage: 60 MILLIGRAM, QD, NUMBER OF UNITS IN THE INTERVAL (DAY) : 1
     Route: 065
     Dates: start: 20210721, end: 20210721
  6. INFLAMAC [Suspect]
     Active Substance: DICLOFENAC
     Indication: PRODUCT USED FOR UNKNOWN INDICATION
     Dosage: 2 DOSAGE FORM, (50 MILLIGRAM), NUMBER OF UNITS IN INTERVAL (DAY) : 2
     Route: 065
     Dates: start: 20210731, end: 20210731
  7. ASPIRIN CARDIO [Concomitant]
     Active Substance: ASPIRIN
     Indication: PRODUCT USED FOR UNKNOWN INDICATION
     Dosage: UNK
     Route: 065
  8. SODIUM CHLORIDE. [Concomitant]
     Active Substance: SODIUM CHLORIDE
     Indication: PRODUCT USED FOR UNKNOWN INDICATION
     Dosage: UNK
     Route: 065
  9. ROCEPHIN [Suspect]
     Active Substance: CEFTRIAXONE SODIUM
     Indication: PRODUCT USED FOR UNKNOWN INDICATION
     Dosage: 2 GRAM, QD, NUMBER OF UNITS IN THE INTERVAL (DAY) : 1
     Route: 041
     Dates: start: 20210731, end: 20210801
  10. ASPEGIC [Concomitant]
     Indication: PRODUCT USED FOR UNKNOWN INDICATION
     Dosage: UNK
     Route: 065
  11. OFIRMEV [Suspect]
     Active Substance: ACETAMINOPHEN
     Indication: PRODUCT USED FOR UNKNOWN INDICATION
     Dosage: 1 GRAM, BID, NUMBER OF UNITS IN THE INTERVAL (DAY) : 2
     Route: 041
     Dates: start: 20210731, end: 20210731
  12. LYSOPAIN DOL AMBROXOL [Suspect]
     Active Substance: AMBROXOL HYDROCHLORIDE
     Indication: PRODUCT USED FOR UNKNOWN INDICATION
     Dosage: 4 DOSAGE FORM (20 MG), NUMBER OF UNITS IN THE INTERVAL (DAY) : 4
     Route: 048
     Dates: start: 20210801, end: 20210801
  13. FRAGMINE [Concomitant]
     Active Substance: DALTEPARIN SODIUM
     Indication: PRODUCT USED FOR UNKNOWN INDICATION
     Dosage: UNK
     Route: 065

REACTIONS (8)
  - Body temperature increased [Unknown]
  - Ear pain [Unknown]
  - Delirium [Unknown]
  - Infection [Unknown]
  - Chills [Unknown]
  - Toxic epidermal necrolysis [Not Recovered/Not Resolved]
  - Acute kidney injury [Unknown]
  - Aggression [Unknown]

NARRATIVE: CASE EVENT DATE: 2021
